FAERS Safety Report 13275558 (Version 2)
Quarter: 2017Q2

REPORT INFORMATION
  Report Type: Report from Study
  Country: US (occurrence: US)
  Receive Date: 20170228
  Receipt Date: 20170417
  Transmission Date: 20170830
  Serious: No
  Sender: FDA-Public Use
  Company Number: PHEH2017US005871

PATIENT
  Age: 63 Year
  Sex: Female
  Weight: 73.4 kg

DRUGS (1)
  1. COSENTYX [Suspect]
     Active Substance: SECUKINUMAB
     Indication: PSORIATIC ARTHROPATHY
     Dosage: 300 MG, UNK
     Route: 058
     Dates: start: 20170109, end: 201702

REACTIONS (5)
  - Tonsillar erythema [Unknown]
  - Dry mouth [Recovered/Resolved]
  - Oropharyngeal pain [Unknown]
  - Mouth ulceration [Recovered/Resolved]
  - Pharyngeal oedema [Unknown]

NARRATIVE: CASE EVENT DATE: 20170220
